FAERS Safety Report 13271255 (Version 1)
Quarter: 2017Q1

REPORT INFORMATION
  Report Type: Spontaneous
  Country: CA (occurrence: CA)
  Receive Date: 20170226
  Receipt Date: 20170226
  Transmission Date: 20170428
  Serious: Yes (Disabling)
  Sender: FDA-Public Use
  Company Number: CA-TEVA-742835ACC

PATIENT
  Age: 60 Year
  Sex: Male

DRUGS (2)
  1. ACT PRAMIPEXOLE [Suspect]
     Active Substance: PRAMIPEXOLE
     Dosage: 4.5 MILLIGRAM DAILY;
  2. ACT PRAMIPEXOLE [Suspect]
     Active Substance: PRAMIPEXOLE
     Indication: PARKINSON^S DISEASE
     Dosage: 4 DOSAGE FORMS DAILY;

REACTIONS (2)
  - Drug intolerance [Unknown]
  - Product substitution issue [Unknown]
